FAERS Safety Report 7904467-3 (Version None)
Quarter: 2011Q4

REPORT INFORMATION
  Report Type: 
  Country: None (occurrence: None)
  Receive Date: 20111109
  Receipt Date: 20111108
  Transmission Date: 20120403
  Serious: Yes (Hospitalization, Other)
  Sender: FDA-Public Use
  Company Number: US-BAYER-2011-103635

PATIENT
  Age: 61 Year
  Sex: Male

DRUGS (3)
  1. NEXAVAR [Suspect]
     Indication: HEPATIC NEOPLASM MALIGNANT
     Dosage: 200 MG, BID
     Route: 048
     Dates: start: 20111017
  2. ANTIHYPERTENSIVES [Concomitant]
     Indication: HYPERTENSION
  3. INSULIN [Concomitant]
     Indication: DIABETES MELLITUS

REACTIONS (5)
  - ABDOMINAL DISTENSION [None]
  - ASCITES [None]
  - DIARRHOEA [None]
  - BLOOD GLUCOSE INCREASED [None]
  - HYPOTENSION [None]
